FAERS Safety Report 11222144 (Version 1)
Quarter: 2015Q2

REPORT INFORMATION
  Report Type: Spontaneous
  Country: BR (occurrence: BR)
  Receive Date: 20150626
  Receipt Date: 20150626
  Transmission Date: 20150821
  Serious: Yes (Life-Threatening, Hospitalization, Other)
  Sender: FDA-Public Use
  Company Number: PHHY2015BR076762

PATIENT
  Sex: Male

DRUGS (1)
  1. VOLTAREN [Suspect]
     Active Substance: DICLOFENAC SODIUM
     Indication: PRODUCT USED FOR UNKNOWN INDICATION
     Route: 065

REACTIONS (13)
  - Apparent death [Unknown]
  - Dermatitis bullous [Unknown]
  - Suicidal ideation [Unknown]
  - General physical health deterioration [Unknown]
  - Visual impairment [Unknown]
  - Blood pressure increased [Unknown]
  - Skin disorder [Unknown]
  - Frustration [Unknown]
  - Pain [Unknown]
  - Sensory disturbance [Unknown]
  - Stevens-Johnson syndrome [Unknown]
  - Feeling abnormal [Unknown]
  - Anxiety [Unknown]
